FAERS Safety Report 8956224 (Version 3)
Quarter: 2013Q2

REPORT INFORMATION
  Report Type: Report from Study
  Country: JP (occurrence: JP)
  Receive Date: 20121210
  Receipt Date: 20130517
  Transmission Date: 20140414
  Serious: Yes (Death)
  Sender: FDA-Public Use
  Company Number: JP-ABBOTT-12P-087-1018185-00

PATIENT
  Age: 69 Year
  Sex: Male

DRUGS (10)
  1. LIPACREON [Suspect]
     Indication: PANCREATIC INSUFFICIENCY
     Route: 048
     Dates: start: 20120427, end: 20120820
  2. SODIUM RABEPRAZOLE [Concomitant]
     Indication: GASTRIC PH DECREASED
     Dates: end: 20120904
  3. OXYCODONE HYDROCHLORIDE HYDRATE [Concomitant]
     Indication: PANCREATIC INSUFFICIENCY
     Route: 048
     Dates: end: 20120905
  4. PROCHLORPERAZINE [Concomitant]
     Indication: PANCREATIC INSUFFICIENCY
     Route: 048
     Dates: end: 20120905
  5. MAGNESIUM OXIDE [Concomitant]
     Indication: PANCREATIC INSUFFICIENCY
     Route: 048
     Dates: end: 20120905
  6. OXALIPLATIN [Concomitant]
     Indication: PANCREATIC INSUFFICIENCY
     Dosage: 140 MG/HOUR
     Dates: start: 20120511, end: 20120727
  7. FLUOROURACIL [Concomitant]
     Indication: PANCREATIC INSUFFICIENCY
     Dosage: 1900 MG/HOUR
     Dates: start: 20120511, end: 20120727
  8. GRANISETRON HYDROCHLORIDE [Concomitant]
     Indication: PANCREATIC INSUFFICIENCY
     Dates: start: 20120511, end: 20120727
  9. LEVOFOLINATE CALCIUM [Concomitant]
     Indication: PANCREATIC INSUFFICIENCY
     Dates: start: 20120511, end: 20120727
  10. DEXAMETHASONE SODIUM PHOSPHATE [Concomitant]
     Indication: PANCREATIC INSUFFICIENCY
     Dates: start: 20120511, end: 20120727

REACTIONS (3)
  - Pancreatic carcinoma [Fatal]
  - Decreased appetite [Not Recovered/Not Resolved]
  - Abdominal distension [Not Recovered/Not Resolved]
